FAERS Safety Report 9205325 (Version 1)
Quarter: 2013Q2

REPORT INFORMATION
  Report Type: Spontaneous
  Country: US (occurrence: US)
  Receive Date: 20130402
  Receipt Date: 20130402
  Transmission Date: 20140414
  Serious: No
  Sender: FDA-Public Use
  Company Number: US-009507513-1303USA013747

PATIENT
  Sex: Male

DRUGS (6)
  1. JANUVIA [Suspect]
     Indication: DIABETES MELLITUS
     Dosage: 50 MG, QD
     Route: 048
     Dates: start: 2009
  2. TRICOR (ADENOSINE) [Concomitant]
  3. CARDURA [Concomitant]
  4. PROSCAR [Concomitant]
  5. ENALAPRIL MALEATE [Concomitant]
  6. TOPRAL [Concomitant]

REACTIONS (2)
  - Creatinine renal clearance abnormal [Unknown]
  - Rash [Unknown]
